FAERS Safety Report 7279960-X (Version None)
Quarter: 2011Q1

REPORT INFORMATION
  Report Type: 
  Country: None (occurrence: None)
  Receive Date: 20110208
  Receipt Date: 20110202
  Transmission Date: 20110831
  Serious: No
  Sender: FDA-Public Use
  Company Number: US-PFIZER INC-2011024758

PATIENT
  Sex: Male

DRUGS (3)
  1. NIFEDIPINE [Suspect]
  2. CLONIDINE [Concomitant]
  3. PROCARDIA XL [Suspect]

REACTIONS (2)
  - PAIN IN EXTREMITY [None]
  - HEART RATE INCREASED [None]
